FAERS Safety Report 9517453 (Version 3)
Quarter: 2014Q1

REPORT INFORMATION
  Report Type: Spontaneous
  Country: JP (occurrence: JP)
  Receive Date: 20130911
  Receipt Date: 20140121
  Transmission Date: 20141002
  Serious: Yes (Life-Threatening, Hospitalization, Other)
  Sender: FDA-Public Use
  Company Number: JP-PFIZER INC-2013256367

PATIENT
  Age: 57 Year
  Sex: Female
  Weight: 53.3 kg

DRUGS (8)
  1. AZULFIDINE EN [Suspect]
     Indication: RHEUMATOID ARTHRITIS
     Route: 048
  2. ENBREL [Suspect]
     Indication: RHEUMATOID ARTHRITIS
     Dosage: 25 MG, 2X/WEEK
     Route: 058
     Dates: start: 20120215, end: 2012
  3. ENBREL [Suspect]
     Dosage: 25 MG, 2X/WEEK
     Route: 058
     Dates: start: 20120312
  4. PROTECADIN [Concomitant]
     Indication: PROPHYLAXIS AGAINST GASTROINTESTINAL ULCER
     Dosage: 10 MG, 2X/DAY
     Route: 048
     Dates: end: 20120223
  5. METHOTREXATE [Concomitant]
     Indication: RHEUMATOID ARTHRITIS
     Dosage: 2 MG, 3X/WEEK
     Route: 048
     Dates: start: 2002, end: 20120223
  6. PREDNISOLONE [Concomitant]
     Indication: RHEUMATOID ARTHRITIS
     Dosage: 2 MG, 2X/DAY
     Route: 048
     Dates: end: 20120223
  7. FOSAMAC [Concomitant]
     Indication: OSTEOPOROSIS PROPHYLAXIS
     Dosage: 35 MG, WEEKLY
     Route: 048
     Dates: end: 20120223
  8. MUCOSOLVAN L [Concomitant]
     Dosage: 45 MG, 1X/DAY
     Route: 048
     Dates: end: 20120223

REACTIONS (2)
  - Histiocytosis haematophagic [Recovering/Resolving]
  - Pancytopenia [Recovering/Resolving]
